FAERS Safety Report 4711041-9 (Version None)
Quarter: 2005Q3

REPORT INFORMATION
  Report Type: 
  Country: None (occurrence: None)
  Receive Date: 20050708
  Receipt Date: 20050708
  Transmission Date: 20060218
  Serious: Yes (Life-Threatening, Hospitalization, Other)
  Sender: FDA-Public Use
  Company Number: None

PATIENT
  Age: 17 Year
  Sex: Male
  Weight: 58.9676 kg

DRUGS (5)
  1. WELLBUTRIN [Suspect]
  2. WELLBUTRIN [Suspect]
  3. DEPAKOTE [Concomitant]
  4. TENEX [Concomitant]
  5. ADDERALL 10 [Concomitant]

REACTIONS (3)
  - ABNORMAL BEHAVIOUR [None]
  - MOOD SWINGS [None]
  - SUICIDAL IDEATION [None]
